FAERS Safety Report 9692771 (Version 2)
Quarter: 2014Q1

REPORT INFORMATION
  Report Type: Report from Study
  Country: JP (occurrence: JP)
  Receive Date: 20131118
  Receipt Date: 20140113
  Transmission Date: 20141002
  Serious: Yes (Death)
  Sender: FDA-Public Use
  Company Number: JP-JNJFOC-20131109111

PATIENT
  Age: 77 Year
  Sex: Female

DRUGS (7)
  1. FINIBAX [Suspect]
     Indication: CHOLECYSTITIS
     Route: 041
     Dates: start: 20131012, end: 20131020
  2. MEROPENEM [Concomitant]
     Indication: CHOLECYSTITIS
     Route: 065
     Dates: start: 20131011, end: 20131012
  3. REMINARON [Concomitant]
     Indication: CHOLECYSTITIS
     Route: 065
     Dates: start: 20131011, end: 20131015
  4. GASTER [Concomitant]
     Indication: CHOLECYSTITIS
     Route: 065
     Dates: start: 20131011, end: 20131018
  5. PITRESSIN [Concomitant]
     Indication: CHOLECYSTITIS
     Route: 065
     Dates: start: 20131011, end: 20131027
  6. PREDOPA [Concomitant]
     Indication: CHOLECYSTITIS
     Route: 065
     Dates: start: 20131011, end: 20131027
  7. PANTHENOL [Concomitant]
     Indication: PRODUCT USED FOR UNKNOWN INDICATION
     Route: 065
     Dates: start: 20131011, end: 20131023

REACTIONS (1)
  - Pseudomembranous colitis [Fatal]
